FAERS Safety Report 24545816 (Version 1)
Quarter: 2024Q4

REPORT INFORMATION
  Report Type: Spontaneous
  Country: US (occurrence: US)
  Receive Date: 20241024
  Receipt Date: 20241024
  Transmission Date: 20250115
  Serious: No
  Sender: Haleon PLC
  Company Number: US-HALEON-2204457

PATIENT
  Age: 71 Year
  Sex: Female

DRUGS (1)
  1. ALLI [Suspect]
     Active Substance: ORLISTAT
     Indication: Weight decreased
     Dosage: TIME INTERVAL: 0.33333333 DAYS: EXPDATE:20250831
     Dates: start: 20240701

REACTIONS (1)
  - Therapeutic product effect decreased [Unknown]
